FAERS Safety Report 21003358 (Version 1)
Quarter: 2022Q2

REPORT INFORMATION
  Report Type: Spontaneous
  Country: US (occurrence: None)
  Receive Date: 20220623
  Receipt Date: 20220623
  Transmission Date: 20220720
  Serious: Yes (Other)
  Sender: FDA-Public Use
  Company Number: None

PATIENT
  Sex: Male
  Weight: 61.6 kg

DRUGS (16)
  1. ABIRATERONE ACETATE [Suspect]
     Active Substance: ABIRATERONE ACETATE
     Indication: Prostate cancer
     Dosage: FREQUENCY : DAILY;?
     Route: 048
  2. IMURAN [Concomitant]
     Active Substance: AZATHIOPRINE
  3. azelastine Hcl  nasal solution [Concomitant]
  4. symbicort inhalation aerosol [Concomitant]
  5. FOLIC ACID [Concomitant]
     Active Substance: FOLIC ACID
  6. GABAPENTIN [Concomitant]
     Active Substance: GABAPENTIN
  7. NORCO [Concomitant]
     Active Substance: ACETAMINOPHEN\HYDROCODONE BITARTRATE
  8. lansoprazle [Concomitant]
  9. ARAVA [Concomitant]
     Active Substance: LEFLUNOMIDE
  10. PREDNISONE [Concomitant]
     Active Substance: PREDNISONE
  11. XARELTO [Concomitant]
     Active Substance: RIVAROXABAN
  12. DALIRESP [Concomitant]
     Active Substance: ROFLUMILAST
  13. CRESTOR [Concomitant]
     Active Substance: ROSUVASTATIN CALCIUM
  14. ZOLOFT [Concomitant]
     Active Substance: SERTRALINE HYDROCHLORIDE
  15. VIAGRA [Concomitant]
     Active Substance: SILDENAFIL CITRATE
  16. FLOMAX [Concomitant]
     Active Substance: TAMSULOSIN HYDROCHLORIDE

REACTIONS (2)
  - Fatigue [None]
  - Hospice care [None]
